FAERS Safety Report 12794903 (Version 2)
Quarter: 2017Q2

REPORT INFORMATION
  Report Type: Spontaneous
  Country: US (occurrence: US)
  Receive Date: 20160929
  Receipt Date: 20170623
  Transmission Date: 20170830
  Serious: No
  Sender: FDA-Public Use
  Company Number: US-BAUSCH-BL-2016-016824

PATIENT
  Age: 67 Year
  Sex: Female
  Weight: 46.31 kg

DRUGS (2)
  1. RESTASIS GENERIC [Concomitant]
     Indication: DRY EYE
     Dosage: USED AS NEEDED IN EYES
     Route: 047
  2. JUBLIA [Suspect]
     Active Substance: EFINACONAZOLE
     Indication: ONYCHOMYCOSIS
     Dosage: TO AFFECTED AREA DAILY
     Route: 061
     Dates: start: 201501

REACTIONS (2)
  - Drug ineffective [Unknown]
  - No adverse event [Unknown]
